FAERS Safety Report 17839295 (Version 1)
Quarter: 2020Q2

REPORT INFORMATION
  Report Type: Spontaneous
  Country: US (occurrence: US)
  Receive Date: 20200528
  Receipt Date: 20200528
  Transmission Date: 20200714
  Serious: No
  Sender: FDA-Public Use
  Company Number: None

PATIENT
  Age: 71 Year
  Sex: Male
  Weight: 80.29 kg

DRUGS (1)
  1. LATANOPROSTENE (LATANOPROSTENE BUNOD 0.024% SOLN,OPH) [Suspect]
     Active Substance: LATANOPROSTENE BUNOD
     Indication: GLAUCOMA
     Route: 031
     Dates: start: 20200327, end: 20200422

REACTIONS (5)
  - Noninfective conjunctivitis [None]
  - Eye pain [None]
  - Eye pruritus [None]
  - Ocular discomfort [None]
  - Ocular hyperaemia [None]

NARRATIVE: CASE EVENT DATE: 20200422
